FAERS Safety Report 6581878-2 (Version None)
Quarter: 2010Q1

REPORT INFORMATION
  Report Type: 
  Country: None (occurrence: None)
  Receive Date: 20100212
  Receipt Date: 20100212
  Transmission Date: 20100710
  Serious: Yes (Death, Life-Threatening, Hospitalization)
  Sender: FDA-Public Use
  Company Number: None

PATIENT
  Age: 81 Year
  Sex: Male
  Weight: 98.9 kg

DRUGS (2)
  1. IOVERSOL [Suspect]
     Dosage: 75 ML ONCE IV
     Route: 042
     Dates: start: 20090310, end: 20090310
  2. VANCOMYCIN [Suspect]
     Dosage: 1250 MG BID IV
     Route: 042
     Dates: start: 20090310, end: 20090310

REACTIONS (5)
  - CARDIO-RESPIRATORY ARREST [None]
  - CONTRAST MEDIA REACTION [None]
  - HAEMODIALYSIS [None]
  - NEPHROPATHY [None]
  - RENAL FAILURE ACUTE [None]
